FAERS Safety Report 7650276-2 (Version None)
Quarter: 2011Q3

REPORT INFORMATION
  Report Type: 
  Country: None (occurrence: None)
  Receive Date: 20110727
  Receipt Date: 20110714
  Transmission Date: 20111222
  Serious: Yes (Hospitalization)
  Sender: FDA-Public Use
  Company Number: 11-050

PATIENT
  Age: 65 Year
  Sex: Male

DRUGS (1)
  1. MECLIZINE HCL [Suspect]
     Indication: VERTIGO
     Dosage: 1-2 TABLETS,DAILY,ORAL. 3 DOSES
     Route: 048
     Dates: start: 20091001, end: 20101001

REACTIONS (6)
  - ANEURYSM [None]
  - HEADACHE [None]
  - VISION BLURRED [None]
  - BODY TEMPERATURE INCREASED [None]
  - POSTURE ABNORMAL [None]
  - VOMITING [None]
